FAERS Safety Report 5337613-9 (Version None)
Quarter: 2007Q2

REPORT INFORMATION
  Report Type: 
  Country: None (occurrence: None)
  Receive Date: 20070309
  Receipt Date: 20060518
  Transmission Date: 20071010
  Serious: Yes (Other)
  Sender: FDA-Public Use
  Company Number: US200605004175

PATIENT
  Age: 50 Year
  Sex: Male

DRUGS (1)
  1. GEMZAR [Suspect]
     Indication: PANCREATIC CARCINOMA
     Dosage: WEEKLY (1/W),
     Dates: start: 20060201

REACTIONS (3)
  - ABDOMINAL SYMPTOM [None]
  - DISEASE PROGRESSION [None]
  - PLATELET COUNT DECREASED [None]
